FAERS Safety Report 8028397-4 (Version None)
Quarter: 2012Q1

REPORT INFORMATION
  Report Type: 
  Country: None (occurrence: None)
  Receive Date: 20120106
  Receipt Date: 20120103
  Transmission Date: 20120608
  Serious: Yes (Other)
  Sender: FDA-Public Use
  Company Number: US-ROCHE-769031

PATIENT
  Sex: Female
  Weight: 65.8 kg

DRUGS (1)
  1. BONIVA [Suspect]
     Indication: OSTEOPOROSIS
     Route: 065
     Dates: start: 20060101, end: 20090101

REACTIONS (2)
  - OSTEONECROSIS OF JAW [None]
  - ANXIETY [None]
